FAERS Safety Report 4397904-5 (Version None)
Quarter: 2004Q3

REPORT INFORMATION
  Report Type: 
  Country: None (occurrence: None)
  Receive Date: 20040713
  Receipt Date: 20040701
  Transmission Date: 20050211
  Serious: Yes (Hospitalization)
  Sender: FDA-Public Use
  Company Number: US-JNJFOC-20040701238

PATIENT
  Age: 50 Year
  Sex: Female

DRUGS (9)
  1. DURAGESIC [Suspect]
     Indication: PAIN
     Dosage: 75 UG/HR, 1 IN 48 HOUR, TRANSDERMAL
     Route: 062
     Dates: start: 20040301
  2. ACTIQ [Concomitant]
  3. TRAMADOL HCL [Concomitant]
  4. ZOLOFT [Concomitant]
  5. VOLTAREN [Concomitant]
  6. NEURONTIN [Concomitant]
  7. THYROID TAB [Concomitant]
  8. AMBIEN [Concomitant]
  9. ATIVAN [Concomitant]

REACTIONS (7)
  - BLOOD PRESSURE INCREASED [None]
  - CHEST DISCOMFORT [None]
  - DYSPNOEA [None]
  - ELECTROCARDIOGRAM ABNORMAL [None]
  - NAUSEA [None]
  - PHARMACEUTICAL PRODUCT COMPLAINT [None]
  - WEIGHT DECREASED [None]
